FAERS Safety Report 9169579 (Version 1)
Quarter: 2013Q1

REPORT INFORMATION
  Report Type: Spontaneous
  Country: US (occurrence: US)
  Receive Date: 20130318
  Receipt Date: 20130318
  Transmission Date: 20140127
  Serious: Yes (Other)
  Sender: FDA-Public Use
  Company Number: US-TEVA-385950USA

PATIENT
  Sex: 0

DRUGS (3)
  1. CALCIUM FOLINATE [Suspect]
  2. OXALIPLATIN [Suspect]
  3. FLUOROURACIL [Suspect]

REACTIONS (2)
  - Blindness [Recovered/Resolved]
  - Vision blurred [Recovered/Resolved]
